FAERS Safety Report 6488585-5 (Version None)
Quarter: 2009Q4

REPORT INFORMATION
  Report Type: 
  Country: None (occurrence: None)
  Receive Date: 20091210
  Receipt Date: 20091202
  Transmission Date: 20100525
  Serious: Yes (Death, Other)
  Sender: FDA-Public Use
  Company Number: JP-BAXTER-2009BH018782

PATIENT
  Age: 44 Year
  Sex: Male

DRUGS (9)
  1. HOLOXAN BAXTER [Suspect]
     Indication: TESTICULAR GERM CELL CANCER
     Route: 065
  2. BLEOMYCIN GENERIC [Suspect]
  3. ETOPOSIDE [Suspect]
     Indication: TESTICULAR GERM CELL CANCER
     Route: 065
  4. CISPLATIN [Suspect]
     Indication: TESTICULAR GERM CELL CANCER
     Route: 065
  5. PACLITAXEL [Suspect]
     Indication: TESTICULAR GERM CELL CANCER
     Route: 065
  6. NEDAPLATIN [Suspect]
     Indication: TESTICULAR GERM CELL CANCER
     Route: 065
  7. GEMCITABINE [Suspect]
     Indication: TESTICULAR GERM CELL CANCER
     Route: 065
  8. IRINOTECAN HCL [Suspect]
     Indication: SALVAGE THERAPY
     Route: 065
  9. RADIOTHERAPY [Suspect]
     Indication: METASTASES TO CENTRAL NERVOUS SYSTEM
     Route: 065

REACTIONS (2)
  - BONE MARROW FAILURE [None]
  - SEPSIS [None]
